FAERS Safety Report 21144811 (Version 1)
Quarter: 2022Q3

REPORT INFORMATION
  Report Type: Spontaneous
  Country: US (occurrence: None)
  Receive Date: 20220728
  Receipt Date: 20220728
  Transmission Date: 20221026
  Serious: No
  Sender: FDA-Public Use
  Company Number: US-ROCHE-3074805

PATIENT
  Sex: Female
  Weight: 56.750 kg

DRUGS (6)
  1. PERJETA [Suspect]
     Active Substance: PERTUZUMAB
     Indication: Chemotherapy
     Dosage: INFUSE 840MG INTRAVENOUSL: ONGOING
     Route: 042
     Dates: start: 20220315
  2. ANASTROZOLE [Concomitant]
     Active Substance: ANASTROZOLE
     Route: 048
     Dates: start: 20220311
  3. DILTIAZEM HYDROCHLORIDE [Concomitant]
     Active Substance: DILTIAZEM HYDROCHLORIDE
     Route: 048
     Dates: start: 20220311
  4. NUCYNTA [Concomitant]
     Active Substance: TAPENTADOL HYDROCHLORIDE
     Route: 048
     Dates: start: 20220311
  5. ERGOCALCIFEROL [Concomitant]
     Active Substance: ERGOCALCIFEROL
     Route: 048
     Dates: start: 20220311
  6. LYRICA [Concomitant]
     Active Substance: PREGABALIN
     Route: 048
     Dates: start: 20220311

REACTIONS (1)
  - Mouth ulceration [Unknown]
